FAERS Safety Report 8847872 (Version 4)
Quarter: 2012Q4

REPORT INFORMATION
  Report Type: Report from Study
  Country: BG (occurrence: BG)
  Receive Date: 20121018
  Receipt Date: 20121116
  Transmission Date: 20130627
  Serious: Yes (Hospitalization)
  Sender: FDA-Public Use
  Company Number: BG-AMGEN-BGRNI2012066220

PATIENT
  Age: 48 Year
  Sex: Male

DRUGS (3)
  1. ROMIPLOSTIM [Suspect]
     Indication: IDIOPATHIC THROMBOCYTOPENIC PURPURA
     Dosage: 0.50 ml, qwk
     Route: 058
     Dates: start: 20120706
  2. ANTIBIOTICS [Concomitant]
     Indication: PNEUMONIA
     Dosage: UNK
  3. ANTIMYCOTICS FOR SYSTEMIC USE [Concomitant]
     Indication: PNEUMONIA
     Dosage: UNK

REACTIONS (1)
  - Dysphagia [Recovering/Resolving]
